FAERS Safety Report 17025370 (Version 1)
Quarter: 2019Q4

REPORT INFORMATION
  Report Type: Spontaneous
  Country: US (occurrence: US)
  Receive Date: 20191113
  Receipt Date: 20191113
  Transmission Date: 20200122
  Serious: Yes (Death)
  Sender: FDA-Public Use
  Company Number: US-TARO PHARMACEUTICALS USA.,INC-2019SUN00593

PATIENT
  Age: 39 Year
  Sex: Female

DRUGS (1)
  1. LAMOTRIGINE. [Suspect]
     Active Substance: LAMOTRIGINE
     Indication: PRODUCT USED FOR UNKNOWN INDICATION
     Dosage: UNK
     Route: 065

REACTIONS (7)
  - Distributive shock [Fatal]
  - Acute kidney injury [Fatal]
  - Systemic candida [Fatal]
  - Multiple organ dysfunction syndrome [Fatal]
  - Acute respiratory failure [Fatal]
  - Haemophagocytic lymphohistiocytosis [Fatal]
  - Disseminated intravascular coagulation [Fatal]
